FAERS Safety Report 25073753 (Version 1)
Quarter: 2025Q1

REPORT INFORMATION
  Report Type: Report from Study
  Country: TW (occurrence: TW)
  Receive Date: 20250313
  Receipt Date: 20250313
  Transmission Date: 20250409
  Serious: Yes (Other)
  Sender: AMGEN
  Company Number: TW-AMGEN-TWNSL2025046762

PATIENT
  Age: 49 Year
  Sex: Female

DRUGS (1)
  1. MVASI [Suspect]
     Active Substance: BEVACIZUMAB-AWWB
     Indication: Product used for unknown indication
     Route: 065

REACTIONS (2)
  - Polyneuropathy [Unknown]
  - Dizziness [Unknown]
